FAERS Safety Report 5381812-7 (Version None)
Quarter: 2007Q3

REPORT INFORMATION
  Report Type: 
  Country: None (occurrence: None)
  Receive Date: 20070709
  Receipt Date: 20070629
  Transmission Date: 20080115
  Serious: Yes (Other)
  Sender: FDA-Public Use
  Company Number: US-AMGEN-STX232119

PATIENT
  Sex: Female

DRUGS (2)
  1. ENBREL [Suspect]
     Indication: RHEUMATOID ARTHRITIS
     Route: 058
     Dates: start: 20001212
  2. PLAQUENIL [Concomitant]
     Route: 065
     Dates: start: 19950101

REACTIONS (4)
  - IMPAIRED HEALING [None]
  - INJECTION SITE VESICLES [None]
  - LUNG DISORDER [None]
  - THROMBOSIS [None]
